FAERS Safety Report 14845133 (Version 1)
Quarter: 2018Q2

REPORT INFORMATION
  Report Type: Spontaneous
  Country: FR (occurrence: FR)
  Receive Date: 20180504
  Receipt Date: 20180504
  Transmission Date: 20180711
  Serious: Yes (Other)
  Sender: FDA-Public Use
  Company Number: FR-ABBVIE-18P-056-2341026-00

PATIENT
  Age: 44 Year
  Sex: Female

DRUGS (1)
  1. DEPAKINE [Suspect]
     Active Substance: VALPROATE SODIUM
     Indication: EPILEPSY
     Route: 048
     Dates: start: 197801

REACTIONS (2)
  - Tooth loss [Recovered/Resolved]
  - Multiple fractures [Recovered/Resolved]

NARRATIVE: CASE EVENT DATE: 201001
